FAERS Safety Report 17700328 (Version 3)
Quarter: 2020Q2

REPORT INFORMATION
  Report Type: Spontaneous
  Country: US (occurrence: US)
  Receive Date: 20200423
  Receipt Date: 20200513
  Transmission Date: 20200714
  Serious: Yes (Hospitalization)
  Sender: FDA-Public Use
  Company Number: US-009507513-2004USA006234

PATIENT
  Age: 29 Year
  Sex: Female

DRUGS (5)
  1. VELETRI [Suspect]
     Active Substance: EPOPROSTENOL
     Dosage: 21 NANOGRAM PER KILOGRAM PER MINUTE
     Dates: start: 202004
  2. THERAPY UNSPECIFIED [Suspect]
     Active Substance: UNSPECIFIED INGREDIENT
     Dosage: 1 IMPLANT, ONE TIME
     Route: 059
     Dates: start: 202004
  3. PROVERA [Concomitant]
     Active Substance: MEDROXYPROGESTERONE ACETATE
     Dosage: UNK
     Route: 048
  4. LAMOTRIGINE. [Concomitant]
     Active Substance: LAMOTRIGINE
     Dosage: UNK
     Route: 048
  5. NORETHINDRONE. [Concomitant]
     Active Substance: NORETHINDRONE
     Dosage: UNK
     Route: 048

REACTIONS (10)
  - Chest pain [Unknown]
  - Headache [Unknown]
  - Fatigue [Unknown]
  - Adverse event [Unknown]
  - Pain [Unknown]
  - Constipation [Unknown]
  - Pain in jaw [Unknown]
  - Abdominal pain [Unknown]
  - Cough [Unknown]
  - Nausea [Unknown]

NARRATIVE: CASE EVENT DATE: 202004
